FAERS Safety Report 6408895-7 (Version None)
Quarter: 2009Q4

REPORT INFORMATION
  Report Type: 
  Country: None (occurrence: None)
  Receive Date: 20091021
  Receipt Date: 20091015
  Transmission Date: 20100525
  Serious: Yes (Hospitalization, Disabling, Other)
  Sender: FDA-Public Use
  Company Number: US-MERCK-0802USA04812

PATIENT
  Age: 44 Year
  Sex: Female
  Weight: 64 kg

DRUGS (3)
  1. FOSAMAX [Suspect]
     Indication: OSTEOPOROSIS
     Route: 048
     Dates: start: 20040101, end: 20060101
  2. HORMONES (UNSPECIFIED) [Concomitant]
     Route: 065
     Dates: start: 19920101
  3. FOSAMAX PLUS D [Suspect]
     Indication: OSTEOPOROSIS
     Route: 048
     Dates: start: 20040101, end: 20060101

REACTIONS (74)
  - ADDISON'S DISEASE [None]
  - ADHESION [None]
  - ANAEMIA OF CHRONIC DISEASE [None]
  - ANAEMIA VITAMIN B12 DEFICIENCY [None]
  - ANXIETY [None]
  - BACK PAIN [None]
  - BREAST DISCHARGE [None]
  - BURNS SECOND DEGREE [None]
  - CELLULITIS [None]
  - CONSTIPATION [None]
  - CONTUSION [None]
  - CONVULSION [None]
  - DENTAL CARIES [None]
  - DEPRESSION [None]
  - DERMATITIS [None]
  - DIABETES MELLITUS [None]
  - DRUG INEFFECTIVE [None]
  - DYSURIA [None]
  - ECZEMA [None]
  - EDENTULOUS [None]
  - EPILEPSY [None]
  - FALL [None]
  - FRACTURE [None]
  - GASTRIC DISORDER [None]
  - GASTROOESOPHAGEAL REFLUX DISEASE [None]
  - HALLUCINATION [None]
  - HEAD INJURY [None]
  - HEADACHE [None]
  - HELICOBACTER GASTRITIS [None]
  - HERNIA [None]
  - HERNIA REPAIR [None]
  - HERPES SIMPLEX [None]
  - HORMONE REPLACEMENT THERAPY [None]
  - HUMERUS FRACTURE [None]
  - HYPOAESTHESIA [None]
  - HYPOTENSION [None]
  - IMPETIGO [None]
  - INCISION SITE COMPLICATION [None]
  - INJURY [None]
  - INTERNAL HERNIA [None]
  - MALNUTRITION [None]
  - MASTICATION DISORDER [None]
  - MENTAL DISORDER [None]
  - MIGRAINE [None]
  - MUSCLE SPASMS [None]
  - NAUSEA [None]
  - NECK PAIN [None]
  - ORAL INFECTION [None]
  - ORAL TORUS [None]
  - OSTEOMYELITIS [None]
  - OSTEONECROSIS [None]
  - PAIN [None]
  - PAIN IN JAW [None]
  - PAIN OF SKIN [None]
  - PNEUMONIA [None]
  - POSTOPERATIVE WOUND INFECTION [None]
  - PULPITIS DENTAL [None]
  - RADIUS FRACTURE [None]
  - RESPIRATORY FAILURE [None]
  - RHINITIS ALLERGIC [None]
  - SCIATIC NERVE INJURY [None]
  - SINUSITIS [None]
  - SKIN DISORDER [None]
  - SKIN LACERATION [None]
  - SMALL INTESTINAL OBSTRUCTION [None]
  - STAPHYLOCOCCAL INFECTION [None]
  - STOMATITIS [None]
  - TEMPOROMANDIBULAR JOINT SYNDROME [None]
  - TOOTH DISORDER [None]
  - TRANSFUSION REACTION [None]
  - TRISMUS [None]
  - ULNA FRACTURE [None]
  - VOLVULUS [None]
  - WEIGHT DECREASED [None]
